FAERS Safety Report 21035055 (Version 1)
Quarter: 2022Q3

REPORT INFORMATION
  Report Type: Spontaneous
  Country: US (occurrence: None)
  Receive Date: 20220701
  Receipt Date: 20220701
  Transmission Date: 20221027
  Serious: Yes (Hospitalization)
  Sender: FDA-Public Use
  Company Number: None

PATIENT
  Sex: Female

DRUGS (1)
  1. AMBRISENTAN [Suspect]
     Active Substance: AMBRISENTAN
     Indication: Pulmonary arterial hypertension
     Dosage: 10 MG ONCE DAILY ORAL?
     Route: 048
     Dates: start: 202110

REACTIONS (4)
  - Chest pain [None]
  - Urinary tract infection [None]
  - Sepsis [None]
  - Hypotension [None]
